FAERS Safety Report 7348494-6 (Version None)
Quarter: 2011Q1

REPORT INFORMATION
  Report Type: 
  Country: None (occurrence: None)
  Receive Date: 20110314
  Receipt Date: 20110304
  Transmission Date: 20110831
  Serious: Yes (Other)
  Sender: FDA-Public Use
  Company Number: US-AMGEN-USASP2010011842

PATIENT
  Age: 61 Year
  Sex: Female

DRUGS (1)
  1. ENBREL [Suspect]
     Indication: RHEUMATOID ARTHRITIS
     Dosage: 50 MG, QWK
     Dates: start: 20100722

REACTIONS (12)
  - NIGHT SWEATS [None]
  - LACERATION [None]
  - THERMAL BURN [None]
  - HEADACHE [None]
  - RHEUMATOID ARTHRITIS [None]
  - RASH ERYTHEMATOUS [None]
  - PANCREATITIS CHRONIC [None]
  - NAUSEA [None]
  - RESPIRATORY TRACT CONGESTION [None]
  - RASH MACULAR [None]
  - PULMONARY CONGESTION [None]
  - CONDITION AGGRAVATED [None]
